FAERS Safety Report 12646144 (Version 1)
Quarter: 2016Q3

REPORT INFORMATION
  Report Type: Spontaneous
  Country: US (occurrence: US)
  Receive Date: 20160811
  Receipt Date: 20160811
  Transmission Date: 20161109
  Serious: Yes (Other)
  Sender: FDA-Public Use
  Company Number: US-AMGEN-USASP2016102575

PATIENT
  Age: 70 Year
  Sex: Female

DRUGS (1)
  1. ENBREL [Suspect]
     Active Substance: ETANERCEPT
     Indication: RHEUMATOID ARTHRITIS
     Dosage: UNK UNK, UNK
     Route: 065
     Dates: start: 2006

REACTIONS (15)
  - Cough [Unknown]
  - Anxiety [Unknown]
  - Irritable bowel syndrome [Unknown]
  - Pneumonia [Unknown]
  - Dysgeusia [Unknown]
  - Headache [Unknown]
  - Malaise [Unknown]
  - Gastrooesophageal reflux disease [Unknown]
  - Arthralgia [Unknown]
  - Eye pain [Unknown]
  - Feeling abnormal [Unknown]
  - Hiatus hernia [Unknown]
  - Tremor [Unknown]
  - Dyspnoea [Unknown]
  - Oesophageal spasm [Unknown]

NARRATIVE: CASE EVENT DATE: 201604
